FAERS Safety Report 12228504 (Version 1)
Quarter: 2016Q1

REPORT INFORMATION
  Report Type: Spontaneous
  Country: US (occurrence: None)
  Receive Date: 20160330
  Receipt Date: 20160330
  Transmission Date: 20160526
  Serious: Yes (Disabling)
  Sender: FDA-Public Use
  Company Number: None

PATIENT
  Age: 64 Year
  Sex: Male

DRUGS (1)
  1. GENTEAL GEL [Suspect]
     Active Substance: CARBOXYMETHYLCELLULOSE SODIUM\HYPROMELLOSES
     Indication: INTRAOPERATIVE CARE
     Dates: start: 20110304

REACTIONS (4)
  - Conjunctival granuloma [None]
  - Ocular discomfort [None]
  - Post procedural complication [None]
  - Granuloma [None]

NARRATIVE: CASE EVENT DATE: 20110304
